FAERS Safety Report 7610915-9 (Version None)
Quarter: 2011Q3

REPORT INFORMATION
  Report Type: 
  Country: None (occurrence: None)
  Receive Date: 20110715
  Receipt Date: 20110607
  Transmission Date: 20111222
  Serious: Yes (Other)
  Sender: FDA-Public Use
  Company Number: US-BAYER-2011-059145

PATIENT
  Age: 68 Year
  Sex: Male

DRUGS (1)
  1. CIPROFLOXACIN HCL [Suspect]

REACTIONS (4)
  - PLANTAR FASCIITIS [None]
  - VISUAL BRIGHTNESS [None]
  - DRUG HYPERSENSITIVITY [None]
  - CONFUSIONAL STATE [None]
